FAERS Safety Report 9060612 (Version 3)
Quarter: 2013Q1

REPORT INFORMATION
  Report Type: Spontaneous
  Country: FR (occurrence: FR)
  Receive Date: 20130212
  Receipt Date: 20130326
  Transmission Date: 20140127
  Serious: Yes (Hospitalization)
  Sender: FDA-Public Use
  Company Number: FR-B.I. PHARMACEUTICALS,INC./RIDGEFIELD-2013-FF-00363FF

PATIENT
  Sex: Female
  Weight: 53 kg

DRUGS (8)
  1. PRADAXA [Suspect]
     Indication: ATRIAL FIBRILLATION
     Dosage: 220 MG
     Route: 048
     Dates: start: 20121109
  2. IXPRIM [Suspect]
     Indication: BACK PAIN
     Route: 048
     Dates: start: 20121211
  3. STILNOX [Concomitant]
  4. BISOPROLOL [Concomitant]
     Indication: VENTRICULAR ARRHYTHMIA
     Dosage: 5 MG
     Route: 048
     Dates: start: 20121109
  5. BISOPROLOL [Concomitant]
     Dosage: 7.5 MG
  6. TRIATEC [Concomitant]
     Indication: CARDIAC FAILURE
     Dosage: 2.5 MG
     Route: 048
     Dates: start: 20121120
  7. TRIATEC [Concomitant]
     Indication: HYPERTENSION
     Dosage: 5 MG
     Route: 048
  8. LASILIX [Concomitant]
     Indication: CARDIAC FAILURE
     Route: 048
     Dates: start: 20121211, end: 20130304

REACTIONS (2)
  - Hallucination [Recovered/Resolved]
  - Decreased appetite [Recovered/Resolved]
